FAERS Safety Report 7810765-4 (Version None)
Quarter: 2011Q4

REPORT INFORMATION
  Report Type: 
  Country: None (occurrence: None)
  Receive Date: 20111006
  Receipt Date: 20110928
  Transmission Date: 20120403
  Serious: Yes (Hospitalization, Other)
  Sender: FDA-Public Use
  Company Number: 2011-US-0127

PATIENT
  Age: 79 Year
  Sex: Female
  Weight: 52.6173 kg

DRUGS (11)
  1. ONDANSETRON [Concomitant]
  2. SANCUSO [Suspect]
     Indication: NAUSEA
     Dosage: ONCE TRANSDERMAL
     Route: 062
     Dates: start: 20110909, end: 20110913
  3. METOPROLOL TARTRATE [Concomitant]
  4. AMLODIPINE BESYLATE [Concomitant]
  5. ASPIRIN [Concomitant]
  6. EMEND [Concomitant]
  7. LEVOTHYROXINE SODIUM [Concomitant]
  8. VITAMIN D [Concomitant]
  9. PROMETHAZINE [Concomitant]
  10. HYDROCHLOROTHIAZIDE [Concomitant]
  11. LISINOPRIL [Concomitant]

REACTIONS (7)
  - RASH [None]
  - ABDOMINAL PAIN [None]
  - BLOOD COUNT ABNORMAL [None]
  - PRURITUS [None]
  - DIARRHOEA [None]
  - RECTAL HAEMORRHAGE [None]
  - DEHYDRATION [None]
